FAERS Safety Report 19384516 (Version 1)
Quarter: 2021Q2

REPORT INFORMATION
  Report Type: Spontaneous
  Country: US (occurrence: US)
  Receive Date: 20210607
  Receipt Date: 20210607
  Transmission Date: 20210717
  Serious: Yes (Other)
  Sender: FDA-Public Use
  Company Number: NVSC2021US120572

PATIENT
  Sex: Male

DRUGS (1)
  1. TRAVATAN Z [Suspect]
     Active Substance: TRAVOPROST
     Indication: PRODUCT USED FOR UNKNOWN INDICATION
     Dosage: UNK
     Route: 065

REACTIONS (8)
  - Hallucination [Unknown]
  - Visual impairment [Unknown]
  - Dizziness [Unknown]
  - Optic nerve injury [Unknown]
  - Cognitive disorder [Unknown]
  - Photophobia [Unknown]
  - Abdominal discomfort [Unknown]
  - Hypoacusis [Unknown]
